FAERS Safety Report 10936319 (Version 1)
Quarter: 2015Q1

REPORT INFORMATION
  Report Type: Spontaneous
  Country: None (occurrence: None)
  Receive Date: 20150320
  Receipt Date: 20150320
  Transmission Date: 20150721
  Serious: Yes (Death, Life-Threatening, Hospitalization)
  Sender: FDA-Public Use
  Company Number: None

PATIENT
  Age: 80 Year
  Sex: Male
  Weight: 89.36 kg

DRUGS (10)
  1. RIVAROXABAN [Suspect]
     Active Substance: RIVAROXABAN
     Dosage: 1 TABLET
     Route: 048
  2. TIOTROPIUM (SPIRIVA HANDIHALER) [Concomitant]
  3. ZOSYN [Concomitant]
     Active Substance: PIPERACILLIN SODIUM\TAZOBACTAM SODIUM
  4. DILTIAZEM (CARDIZEM CD) [Concomitant]
  5. ASPIRIN. [Concomitant]
     Active Substance: ASPIRIN
  6. FLUOXETINE HCL (PROZAC) [Concomitant]
  7. LIPITOR [Concomitant]
     Active Substance: ATORVASTATIN CALCIUM
  8. AMIODARONE (PACERONE) [Concomitant]
  9. HYDROCODONE-ACETAMINOPHEN (NORCO) [Concomitant]
  10. VANCOMYCIN [Concomitant]
     Active Substance: VANCOMYCIN

REACTIONS (5)
  - Deep vein thrombosis [None]
  - Chronic respiratory failure [None]
  - Pulmonary embolism [None]
  - Lung infection [None]
  - Pneumonia [None]

NARRATIVE: CASE EVENT DATE: 20141207
